APPROVED DRUG PRODUCT: TERIFLUNOMIDE
Active Ingredient: TERIFLUNOMIDE
Strength: 14MG
Dosage Form/Route: TABLET;ORAL
Application: A209549 | Product #002
Applicant: WATSON LABORATORIES INC AN INDIRECT WHOLLY OWNED SUB OF TEVA PHARMACEUTICALS USA INC
Approved: Jul 27, 2018 | RLD: No | RS: No | Type: DISCN